FAERS Safety Report 5095824-4 (Version None)
Quarter: 2006Q3

REPORT INFORMATION
  Report Type: 
  Country: None (occurrence: None)
  Receive Date: 20060905
  Receipt Date: 20060825
  Transmission Date: 20061208
  Serious: Yes (Other)
  Sender: FDA-Public Use
  Company Number: FR-JNJFOC-20060604631

PATIENT
  Sex: Male
  Weight: 90 kg

DRUGS (6)
  1. RISPERDAL CONSTA [Suspect]
     Indication: PSYCHOTIC DISORDER
     Route: 030
     Dates: start: 20051128, end: 20060714
  2. RISPERDAL [Suspect]
     Indication: PSYCHOTIC DISORDER
     Route: 048
     Dates: start: 20051128, end: 20060714
  3. PARKINANE [Concomitant]
     Indication: PARKINSONISM
  4. SERESTA [Concomitant]
     Indication: PSYCHOTIC DISORDER
  5. DEPAKOTE [Concomitant]
     Indication: PSYCHOTIC DISORDER
  6. ZOLPIDEM [Concomitant]

REACTIONS (3)
  - EPILEPSY [None]
  - FALL [None]
  - INJURY [None]
